FAERS Safety Report 5811217-3 (Version None)
Quarter: 2008Q3

REPORT INFORMATION
  Report Type: 
  Country: None (occurrence: None)
  Receive Date: 20080716
  Receipt Date: 20080714
  Transmission Date: 20090109
  Serious: Yes (Other)
  Sender: FDA-Public Use
  Company Number: FR-BRISTOL-MYERS SQUIBB COMPANY-14262109

PATIENT
  Age: 75 Year
  Sex: Male

DRUGS (3)
  1. METFORMIN HCL [Suspect]
     Indication: DIABETES MELLITUS
     Dosage: FOR A FEW WEEKS IN 2004; RESTARTED ON 850MG BID.
  2. FLUDARABINE PHOSPHATE [Suspect]
     Indication: LYMPHOMA
     Dosage: FIRST COURSE - 25 MG/M2/DAY FOR FIVE DAYS IN JAN-2007.
     Route: 048
  3. FLUDARABINE PHOSPHATE [Suspect]
     Indication: CHRONIC LYMPHOCYTIC LEUKAEMIA
     Dosage: FIRST COURSE - 25 MG/M2/DAY FOR FIVE DAYS IN JAN-2007.
     Route: 048

REACTIONS (1)
  - AUTOIMMUNE NEUTROPENIA [None]
